FAERS Safety Report 7867017-6 (Version None)
Quarter: 2011Q4

REPORT INFORMATION
  Report Type: 
  Country: None (occurrence: None)
  Receive Date: 20111028
  Receipt Date: 20111019
  Transmission Date: 20120403
  Serious: Yes (Life-Threatening, Hospitalization)
  Sender: FDA-Public Use
  Company Number: FR-ROCHE-804307

PATIENT
  Sex: Male
  Weight: 94 kg

DRUGS (5)
  1. MABTHERA [Suspect]
     Indication: RHEUMATOID ARTHRITIS
     Dosage: LAST DOSE ADMINISTERED BY THE END OF MAY 2011 - START OF JUNE 2011.
     Route: 042
  2. NEXIUM [Concomitant]
     Indication: GASTROOESOPHAGEAL REFLUX DISEASE
     Route: 048
  3. LEXOMIL [Concomitant]
     Indication: INSOMNIA
     Route: 048
  4. METHOTREXATE [Concomitant]
     Indication: RHEUMATOID ARTHRITIS
     Dosage: UNKNOWN
  5. LAMALINE [Concomitant]
     Indication: ARTHRALGIA
     Route: 048

REACTIONS (2)
  - KLEBSIELLA SEPSIS [None]
  - LUNG DISORDER [None]
